FAERS Safety Report 9224219 (Version 7)
Quarter: 2024Q3

REPORT INFORMATION
  Report Type: Spontaneous
  Country: US (occurrence: US)
  Receive Date: 20130411
  Receipt Date: 20240730
  Transmission Date: 20241017
  Serious: Yes (Life-Threatening, Disabling, Other)
  Sender: MERCK
  Company Number: US-009507513-1304USA004406

PATIENT
  Sex: Female
  Weight: 69.841 kg

DRUGS (29)
  1. EMEND [Interacting]
     Active Substance: APREPITANT
     Indication: Prophylaxis of nausea and vomiting
     Dosage: 150 ML, UNK
     Route: 041
     Dates: start: 20130307
  2. EMEND [Interacting]
     Active Substance: APREPITANT
     Dosage: 150 MG, UNK
     Route: 041
     Dates: start: 20130321
  3. EMEND [Interacting]
     Active Substance: APREPITANT
     Dosage: 150 MG, UNK
     Route: 041
     Dates: start: 20130403
  4. CLOTRIMAZOLE [Interacting]
     Active Substance: CLOTRIMAZOLE
     Indication: Oral candidiasis
     Dosage: 10 MG 5 TIMES A DAY
     Route: 048
     Dates: start: 20130401, end: 20130409
  5. DECADRON [Suspect]
     Active Substance: DEXAMETHASONE
     Dosage: 10 MG, UNK
     Route: 041
     Dates: start: 20130307, end: 20130307
  6. DECADRON [Suspect]
     Active Substance: DEXAMETHASONE
     Dosage: 10 MG, UNK
     Route: 041
     Dates: start: 20130321, end: 20130321
  7. DECADRON [Suspect]
     Active Substance: DEXAMETHASONE
     Dosage: 10 MG, UNK
     Route: 041
     Dates: start: 20130403, end: 20130403
  8. DECADRON [Suspect]
     Active Substance: DEXAMETHASONE
     Dosage: 4 MG, BID
     Route: 048
     Dates: start: 20130309, end: 20130310
  9. DECADRON [Suspect]
     Active Substance: DEXAMETHASONE
     Dosage: 4 MG, BID
     Route: 048
     Dates: start: 20130323, end: 20130324
  10. DECADRON [Suspect]
     Active Substance: DEXAMETHASONE
     Dosage: 4 MG, BID
     Route: 048
     Dates: start: 20130405, end: 20130406
  11. ALOXI [Concomitant]
     Active Substance: PALONOSETRON HYDROCHLORIDE
     Dosage: UNK
     Route: 041
     Dates: start: 20130307
  12. ALOXI [Concomitant]
     Active Substance: PALONOSETRON HYDROCHLORIDE
     Dosage: UNK
     Route: 041
     Dates: start: 20130321
  13. ALOXI [Concomitant]
     Active Substance: PALONOSETRON HYDROCHLORIDE
     Dosage: UNK
     Route: 041
     Dates: start: 20130403
  14. RANITIDINE [Concomitant]
     Active Substance: RANITIDINE
     Dosage: 300 MG, BID
  15. OMEPRAZOLE [Concomitant]
     Active Substance: OMEPRAZOLE
     Dosage: 40 MG, QID
     Route: 048
  16. CALCIUM CITRATE [Concomitant]
     Active Substance: CALCIUM CITRATE
  17. MAGNESIUM OXIDE [Concomitant]
     Active Substance: MAGNESIUM OXIDE
     Dosage: 400 MG, UNK
     Route: 048
  18. GLUTAMINE [Concomitant]
     Active Substance: GLUTAMINE
     Dosage: 500 MG, UNK
     Route: 048
  19. THIOCTIC ACID [Concomitant]
     Active Substance: THIOCTIC ACID
     Dosage: 300 MG, UNK
     Route: 048
  20. PYRIDOXINE [Concomitant]
     Active Substance: PYRIDOXINE
     Dosage: 200 MG, UNK
     Route: 048
  21. UBIDECARENONE [Concomitant]
     Active Substance: UBIDECARENONE
     Dosage: 400 MG, UNK
     Route: 048
  22. ACETAMINOPHEN [Concomitant]
     Active Substance: ACETAMINOPHEN
     Dosage: 3000 MG, PRN
     Route: 048
  23. LORATADINE [Concomitant]
     Active Substance: LORATADINE
     Indication: Bone pain
     Dosage: 10 MG, UNK
     Route: 048
  24. COLACE [Concomitant]
     Active Substance: DOCUSATE SODIUM
     Dosage: 100 MG, UNK
     Route: 048
  25. MIRALAX [Concomitant]
     Active Substance: POLYETHYLENE GLYCOL 3350
     Dosage: 1 UNK, UNK
     Route: 048
  26. DOXORUBICIN [Concomitant]
     Active Substance: DOXORUBICIN
     Dosage: UNK
  27. CYTOXAN [Concomitant]
     Active Substance: CYCLOPHOSPHAMIDE
     Dosage: UNK
     Dates: start: 20130307
  28. PACLITAXEL [Concomitant]
     Active Substance: PACLITAXEL
  29. NEULASTA [Concomitant]
     Active Substance: PEGFILGRASTIM
     Dosage: UNK
     Dates: start: 20130309

REACTIONS (11)
  - Renal salt-wasting syndrome [Recovering/Resolving]
  - Polyuria [Not Recovered/Not Resolved]
  - Polyuria [Recovered/Resolved]
  - Polyuria [Recovered/Resolved]
  - Hypersensitivity [Not Recovered/Not Resolved]
  - Orthostatic hypotension [Unknown]
  - Central venous pressure decreased [Unknown]
  - Overdose [Unknown]
  - Drug interaction [Unknown]
  - Tachycardia [Not Recovered/Not Resolved]
  - Weight decreased [Unknown]

NARRATIVE: CASE EVENT DATE: 20130101
